FAERS Safety Report 19521137 (Version 2)
Quarter: 2021Q3

REPORT INFORMATION
  Report Type: Spontaneous
  Country: US (occurrence: US)
  Receive Date: 20210712
  Receipt Date: 20210720
  Transmission Date: 20211014
  Serious: Yes (Hospitalization)
  Sender: FDA-Public Use
  Company Number: US-009507513-2106USA007929

PATIENT
  Weight: 82.99 kg

DRUGS (13)
  1. VITAMIN D3 [Concomitant]
     Active Substance: CHOLECALCIFEROL
     Dosage: 1 CAPSULE, 1 TIME PER DAY
     Route: 048
  2. INVEGA SUSTENNA [Concomitant]
     Active Substance: PALIPERIDONE PALMITATE
     Dosage: 1 MILLILITER, PER MONTH
     Route: 030
  3. MARIJUANA [Concomitant]
     Active Substance: CANNABIS SATIVA SUBSP. INDICA TOP
  4. ISENTRESS [Suspect]
     Active Substance: RALTEGRAVIR POTASSIUM
     Indication: HIV INFECTION
     Dosage: 400 MILLIGRAM, BID
     Route: 048
     Dates: start: 2014, end: 20210617
  5. COMBIVIR [Suspect]
     Active Substance: LAMIVUDINE\ZIDOVUDINE
  6. LISINOPRIL. [Concomitant]
     Active Substance: LISINOPRIL
     Dosage: 1 TABLET, 1 TIMER PER DAY
     Route: 048
  7. OLANZAPINE. [Concomitant]
     Active Substance: OLANZAPINE
     Dosage: 1 TABLET, 1 TIME PER DAY
     Route: 048
  8. APTIVUS [Concomitant]
     Active Substance: TIPRANAVIR
     Dosage: 2 CAPSULES, BID
     Route: 048
  9. ALPRAZOLAM. [Concomitant]
     Active Substance: ALPRAZOLAM
     Dosage: 1 TABLET, PRN, 3 TIMES PER DAY
     Route: 048
  10. ASPIRINE [Concomitant]
     Active Substance: ASPIRIN
     Dosage: 1 TABLET, 1 TIME PER DAY
  11. NORVIR [Suspect]
     Active Substance: RITONAVIR
  12. VOLTAREN [DICLOFENAC] [Concomitant]
     Active Substance: DICLOFENAC SODIUM
     Dosage: 2 GRAM, PRN
  13. GABAPENTIN. [Concomitant]
     Active Substance: GABAPENTIN
     Dosage: 1 TABLET, 2 TIMES PER DAY
     Route: 048

REACTIONS (5)
  - Drug resistance [Not Recovered/Not Resolved]
  - Treatment noncompliance [Unknown]
  - Drug ineffective [Not Recovered/Not Resolved]
  - Mental disorder [Unknown]
  - Viral infection [Unknown]
